FAERS Safety Report 21663203 (Version 1)
Quarter: 2022Q4

REPORT INFORMATION
  Report Type: Report from Study
  Country: US (occurrence: US)
  Receive Date: 20221130
  Receipt Date: 20221130
  Transmission Date: 20230113
  Serious: Yes (Hospitalization, Other)
  Sender: FDA-Public Use
  Company Number: US-BAYER-2022A117218

PATIENT
  Age: 27 Year
  Sex: Female
  Weight: 69.7 kg

DRUGS (4)
  1. REGORAFENIB [Suspect]
     Active Substance: REGORAFENIB
     Indication: Osteosarcoma recurrent
     Dosage: 120 MG, QD, DAYS 1-21
     Route: 048
     Dates: start: 20220803, end: 20220814
  2. REGORAFENIB [Suspect]
     Active Substance: REGORAFENIB
     Indication: Osteosarcoma recurrent
     Dosage: 80 MG, QD, D1-D21
     Route: 048
     Dates: start: 20220831, end: 20220908
  3. NIVOLUMAB [Suspect]
     Active Substance: NIVOLUMAB
     Indication: Osteosarcoma recurrent
     Dosage: 480 MG, Q4WK
     Route: 042
     Dates: start: 20220803
  4. NIVOLUMAB [Suspect]
     Active Substance: NIVOLUMAB
     Indication: Osteosarcoma recurrent
     Dosage: 480 MG, QD, D1
     Route: 042
     Dates: start: 20220831, end: 20220831

REACTIONS (6)
  - Aspartate aminotransferase increased [Recovered/Resolved]
  - Pyrexia [Recovered/Resolved]
  - Diarrhoea [Recovered/Resolved]
  - Rash maculo-papular [Recovered/Resolved]
  - Hypoxia [Recovered/Resolved]
  - Neuralgia [Recovered/Resolved]

NARRATIVE: CASE EVENT DATE: 20220817
